FAERS Safety Report 6618891-2 (Version None)
Quarter: 2010Q1

REPORT INFORMATION
  Report Type: 
  Country: None (occurrence: None)
  Receive Date: 20100308
  Receipt Date: 20100222
  Transmission Date: 20100710
  Serious: Yes (Other)
  Sender: FDA-Public Use
  Company Number: GB-MYLANLABS-2009S1020615

PATIENT
  Age: 76 Year
  Sex: Male

DRUGS (9)
  1. SERTRALINE HCL [Suspect]
     Indication: DEPRESSED MOOD
     Route: 048
  2. SERTRALINE HCL [Suspect]
     Route: 048
  3. MIRAPEX [Suspect]
     Indication: PARKINSON'S DISEASE
     Route: 048
  4. CIMETIDINE [Concomitant]
     Indication: DRUG USE FOR UNKNOWN INDICATION
  5. FUROSEMIDE [Concomitant]
     Indication: DRUG USE FOR UNKNOWN INDICATION
     Route: 048
  6. MADOPAR [Concomitant]
     Indication: PARKINSON'S DISEASE
     Route: 048
  7. QUININE SULFATE [Concomitant]
     Indication: DRUG USE FOR UNKNOWN INDICATION
     Route: 048
  8. SPIRONOLACTONE [Concomitant]
     Indication: CARDIAC FAILURE CONGESTIVE
  9. INFUMORPH [Concomitant]
     Indication: PAIN
     Route: 048

REACTIONS (2)
  - VISUAL IMPAIRMENT [None]
  - VITREOUS FLOATERS [None]
